FAERS Safety Report 17655967 (Version 10)
Quarter: 2021Q2

REPORT INFORMATION
  Report Type: Spontaneous
  Country: US (occurrence: US)
  Receive Date: 20200410
  Receipt Date: 20210527
  Transmission Date: 20210716
  Serious: Yes (Other)
  Sender: FDA-Public Use
  Company Number: US-GLAXOSMITHKLINE-US2020AMR051258

PATIENT
  Sex: Female

DRUGS (7)
  1. ZEJULA [Suspect]
     Active Substance: NIRAPARIB
     Dosage: 100 MG, QD
     Route: 048
  2. ZEJULA [Suspect]
     Active Substance: NIRAPARIB
     Dosage: 200 MG, QD
  3. ZEJULA [Suspect]
     Active Substance: NIRAPARIB
     Dosage: 100 MG, QD
  4. ZEJULA [Suspect]
     Active Substance: NIRAPARIB
     Dosage: 100 MG, QD
  5. ZEJULA [Suspect]
     Active Substance: NIRAPARIB
     Indication: OVARIAN CANCER
     Dosage: 200 MG, ONCE DAILY
     Dates: start: 20200229, end: 20200413
  6. ZEJULA [Suspect]
     Active Substance: NIRAPARIB
     Dosage: 100 MG, QD
     Dates: start: 20200511
  7. ZEJULA [Suspect]
     Active Substance: NIRAPARIB
     Dosage: 100 MG, QD QPM W/O FOOD
     Route: 048

REACTIONS (15)
  - Renal impairment [Unknown]
  - Haemoglobin decreased [Recovering/Resolving]
  - Dyspnoea [Recovered/Resolved]
  - Constipation [Unknown]
  - Nausea [Not Recovered/Not Resolved]
  - Chronic kidney disease [Unknown]
  - Illness [Unknown]
  - Haemoglobin abnormal [Recovering/Resolving]
  - Seasonal allergy [Unknown]
  - Hypertension [Not Recovered/Not Resolved]
  - Off label use [Unknown]
  - Feeling abnormal [Unknown]
  - Blood pressure fluctuation [Unknown]
  - Lymphadenopathy [Recovering/Resolving]
  - Scan abnormal [Unknown]
